FAERS Safety Report 10727397 (Version 2)
Quarter: 2015Q2

REPORT INFORMATION
  Report Type: Report from Study
  Country: US (occurrence: US)
  Receive Date: 20150121
  Receipt Date: 20150414
  Transmission Date: 20150821
  Serious: Yes (Death, Hospitalization)
  Sender: FDA-Public Use
  Company Number: US-TEVA-535418USA

PATIENT
  Age: 67 Year
  Sex: Male
  Weight: 75.09 kg

DRUGS (10)
  1. PRILOSEC [Concomitant]
     Active Substance: OMEPRAZOLE MAGNESIUM
     Indication: GASTROOESOPHAGEAL REFLUX DISEASE
     Dates: start: 20140925
  2. FLOMAX [Concomitant]
     Active Substance: TAMSULOSIN HYDROCHLORIDE
     Indication: BENIGN PROSTATIC HYPERPLASIA
     Dates: start: 20140925
  3. DIAMOX SEQUELS [Suspect]
     Active Substance: ACETAZOLAMIDE
     Indication: PAPILLOEDEMA
     Dosage: 250 MILLIGRAM DAILY;
     Route: 048
     Dates: start: 20141002
  4. COUMADIN [Concomitant]
     Active Substance: WARFARIN SODIUM
     Dates: start: 20140925
  5. SYNTHROID [Concomitant]
     Active Substance: LEVOTHYROXINE SODIUM
     Indication: HYPOTHYROIDISM
     Dates: start: 20140925
  6. INVESTIGATIONAL DRUG [Suspect]
     Active Substance: INVESTIGATIONAL PRODUCT
     Indication: SQUAMOUS CELL CARCINOMA OF HEAD AND NECK
     Dosage: 1.0957 MILLIGRAM DAILY; 0.3 MG/KG
     Route: 041
     Dates: start: 20141010, end: 20141121
  7. MUCINEX [Concomitant]
     Active Substance: GUAIFENESIN
     Indication: MUCOUS MEMBRANE DISORDER
     Dates: start: 20141024
  8. NORMAL SALINE [Concomitant]
     Active Substance: SODIUM CHLORIDE
     Indication: DEHYDRATION
     Dates: start: 20141121, end: 20141121
  9. XANAX [Concomitant]
     Active Substance: ALPRAZOLAM
     Indication: INSOMNIA
     Dates: start: 20141024
  10. AMBIEN [Concomitant]
     Active Substance: ZOLPIDEM TARTRATE
     Indication: INSOMNIA
     Dates: start: 20140925

REACTIONS (1)
  - Dehydration [Fatal]

NARRATIVE: CASE EVENT DATE: 20141128
